FAERS Safety Report 9725182 (Version 1)
Quarter: 2013Q4

REPORT INFORMATION
  Report Type: Report from Study
  Country: CN (occurrence: CN)
  Receive Date: 20131203
  Receipt Date: 20131203
  Transmission Date: 20140711
  Serious: Yes (Hospitalization)
  Sender: FDA-Public Use
  Company Number: CN-AMGEN-CHNCT2013084560

PATIENT
  Age: 68 Year
  Sex: Male

DRUGS (6)
  1. DARBEPOETIN ALFA [Suspect]
     Indication: NEPHROGENIC ANAEMIA
     Dosage: 10 MUG, UNK
     Route: 042
     Dates: start: 20130812
  2. PRAZOSIN HYDROCHLORIDE [Concomitant]
     Dosage: 1 MG, TID
     Route: 065
     Dates: start: 2009
  3. VALSARTAN [Concomitant]
     Dosage: 160 MG, BID
     Route: 065
     Dates: start: 201307
  4. NIFEDIPINE [Concomitant]
     Dosage: 60 MG, BID
     Route: 065
     Dates: start: 201307
  5. ACARBOSE [Concomitant]
     Dosage: 50 MG, TID
     Route: 065
     Dates: start: 201307
  6. HUMAN INSULIN MIX [Concomitant]
     Dosage: 20IU-10IU-14IU, UNK
     Route: 065
     Dates: start: 201307

REACTIONS (1)
  - Chest pain [Unknown]
